FAERS Safety Report 7600452-X (Version None)
Quarter: 2011Q3

REPORT INFORMATION
  Report Type: 
  Country: None (occurrence: None)
  Receive Date: 20110711
  Receipt Date: 20110701
  Transmission Date: 20111222
  Serious: Yes (Hospitalization, Other)
  Sender: FDA-Public Use
  Company Number: US-BAYER-201011571NA

PATIENT
  Age: 19 Year
  Sex: Female
  Weight: 53.061 kg

DRUGS (13)
  1. YAZ [Suspect]
     Indication: CONTRACEPTION
     Dosage: UNK UNK, QD
     Route: 048
     Dates: start: 20080101, end: 20090101
  2. YASMIN [Suspect]
     Indication: ACNE
  3. YASMIN [Suspect]
     Indication: MENSTRUATION IRREGULAR
  4. VOLTAREN [Concomitant]
  5. YAZ [Suspect]
     Indication: ACNE
  6. YAZ [Suspect]
     Indication: MENSTRUATION IRREGULAR
  7. YASMIN [Suspect]
     Indication: CONTRACEPTION
     Dosage: UNK UNK, QD
     Route: 048
     Dates: start: 20050101, end: 20070101
  8. YASMIN [Suspect]
     Indication: PREMENSTRUAL SYNDROME
  9. LORTAB [Concomitant]
  10. YAZ [Suspect]
     Indication: PREMENSTRUAL SYNDROME
  11. CONCERTA [Concomitant]
     Indication: ATTENTION DEFICIT/HYPERACTIVITY DISORDER
     Dosage: 36 MG, UNK
     Route: 048
  12. CITALOPRAM HYDROBROMIDE [Concomitant]
  13. PROPRANOLOL [Concomitant]
     Indication: HYPERTENSION
     Dosage: 20 MG, QD
     Route: 048

REACTIONS (2)
  - PAIN [None]
  - CHOLECYSTITIS CHRONIC [None]
